FAERS Safety Report 21356073 (Version 2)
Quarter: 2022Q3

REPORT INFORMATION
  Report Type: Report from Study
  Country: KR (occurrence: KR)
  Receive Date: 20220920
  Receipt Date: 20220927
  Transmission Date: 20221027
  Serious: Yes (Other)
  Sender: FDA-Public Use
  Company Number: KR-TAKEDA-2022TUS066034

PATIENT
  Age: 49 Year
  Sex: Female

DRUGS (4)
  1. MOBOCERTINIB [Suspect]
     Active Substance: MOBOCERTINIB
     Indication: Non-small cell lung cancer
     Dosage: 160 MILLIGRAM, QD
     Route: 048
     Dates: start: 20220713, end: 20220913
  2. SYNERJET [Concomitant]
     Dosage: UNK
     Route: 048
     Dates: start: 20220713
  3. LOPMIN [Concomitant]
     Dosage: 2 MILLIGRAM
     Route: 048
     Dates: start: 20220715
  4. CLEOCIN [Concomitant]
     Active Substance: CLINDAMYCIN PHOSPHATE
     Indication: Rash
     Dosage: 30 MILLILITER
     Route: 061
     Dates: start: 20220721, end: 20220830

REACTIONS (1)
  - Non-small cell lung cancer [Unknown]
